FAERS Safety Report 6961791-9 (Version None)
Quarter: 2010Q3

REPORT INFORMATION
  Report Type: 
  Country: None (occurrence: None)
  Receive Date: 20100901
  Receipt Date: 20100826
  Transmission Date: 20110219
  Serious: Yes (Hospitalization)
  Sender: FDA-Public Use
  Company Number: US-GILEAD-2010-0031160

PATIENT
  Sex: Female

DRUGS (13)
  1. LETAIRIS [Suspect]
     Indication: PULMONARY ARTERIAL HYPERTENSION
     Route: 048
     Dates: start: 20100721, end: 20100801
  2. ADCIRCA [Concomitant]
  3. REMODULIN [Concomitant]
  4. LASIX [Concomitant]
  5. ALBUTEROL [Concomitant]
  6. ADVAIR DISKUS 100/50 [Concomitant]
  7. SPIRIVA [Concomitant]
  8. PREDNISONE [Concomitant]
  9. WARFARIN SODIUM [Concomitant]
  10. PERCOCET [Concomitant]
  11. XANAX [Concomitant]
  12. LEVOTHYROXINE [Concomitant]
  13. POTASSIUM [Concomitant]

REACTIONS (2)
  - DYSPNOEA [None]
  - PYREXIA [None]
